FAERS Safety Report 23096896 (Version 2)
Quarter: 2023Q4

REPORT INFORMATION
  Report Type: Report from Study
  Country: DE (occurrence: DE)
  Receive Date: 20231023
  Receipt Date: 20231026
  Transmission Date: 20240110
  Serious: Yes (Hospitalization)
  Sender: FDA-Public Use
  Company Number: DE-SA-SAC20230501000045

PATIENT
  Age: 69 Year
  Sex: Male
  Weight: 88 kg

DRUGS (20)
  1. ISATUXIMAB [Suspect]
     Active Substance: ISATUXIMAB
     Indication: Plasma cell myeloma
     Dosage: 880 MG, QD
     Route: 042
     Dates: start: 20220112, end: 20220112
  2. ISATUXIMAB [Suspect]
     Active Substance: ISATUXIMAB
     Dosage: 880 MG, QD
     Route: 042
     Dates: start: 20230420, end: 20230420
  3. ISATUXIMAB [Suspect]
     Active Substance: ISATUXIMAB
     Dosage: 900 MG, QD
     Route: 042
     Dates: start: 20231004, end: 20231004
  4. CARFILZOMIB [Suspect]
     Active Substance: CARFILZOMIB
     Indication: Plasma cell myeloma
     Dosage: 76 MG, QD
     Route: 042
     Dates: start: 20220112, end: 20220112
  5. CARFILZOMIB [Suspect]
     Active Substance: CARFILZOMIB
     Dosage: 76 MG, QD
     Route: 042
     Dates: start: 20230420, end: 20230420
  6. CARFILZOMIB [Suspect]
     Active Substance: CARFILZOMIB
     Dosage: 76 MG, QD
     Route: 042
     Dates: start: 20231004, end: 20231004
  7. LENALIDOMIDE [Suspect]
     Active Substance: LENALIDOMIDE
     Indication: Plasma cell myeloma
     Dosage: 10 MG, QD
     Route: 048
     Dates: start: 20220112, end: 20220112
  8. LENALIDOMIDE [Suspect]
     Active Substance: LENALIDOMIDE
     Dosage: 10 MG, QD
     Route: 048
     Dates: start: 20230425, end: 20230425
  9. LENALIDOMIDE [Suspect]
     Active Substance: LENALIDOMIDE
     Dosage: 10 MG, QD
     Route: 048
     Dates: start: 20231007, end: 20231007
  10. DEXAMETHASONE [Concomitant]
     Active Substance: DEXAMETHASONE
     Indication: Plasma cell myeloma
     Dosage: 40 MG, QD
     Route: 042
     Dates: start: 20220112, end: 20220112
  11. DEXAMETHASONE [Concomitant]
     Active Substance: DEXAMETHASONE
     Dosage: 40 MG, QD
     Route: 042
     Dates: start: 20230420, end: 20230420
  12. DEXAMETHASONE [Concomitant]
     Active Substance: DEXAMETHASONE
     Dosage: 8 MG, QD
     Route: 048
     Dates: start: 20231004, end: 20231004
  13. ACYCLOVIR [Concomitant]
     Active Substance: ACYCLOVIR
     Indication: Prophylaxis
     Dosage: 800 MG
     Route: 048
     Dates: start: 20211203, end: 20230426
  14. ACYCLOVIR [Concomitant]
     Active Substance: ACYCLOVIR
     Dosage: 800 MG
     Route: 048
     Dates: start: 20231008, end: 20231008
  15. ELIQUIS [Concomitant]
     Active Substance: APIXABAN
     Indication: Thrombosis prophylaxis
     Dosage: 10 MG
     Route: 048
     Dates: start: 20180601, end: 20230426
  16. ELIQUIS [Concomitant]
     Active Substance: APIXABAN
     Dosage: 5 MG
     Route: 048
     Dates: start: 20231008, end: 20231008
  17. SULFAMETHOXAZOLE\TRIMETHOPRIM [Concomitant]
     Active Substance: SULFAMETHOXAZOLE\TRIMETHOPRIM
     Indication: Prophylaxis
     Dosage: 960 MG
     Route: 048
     Dates: start: 20211203, end: 20211203
  18. SULFAMETHOXAZOLE\TRIMETHOPRIM [Concomitant]
     Active Substance: SULFAMETHOXAZOLE\TRIMETHOPRIM
     Dosage: 960 MG
     Route: 048
     Dates: start: 20231006, end: 20231006
  19. PANTOPRAZOLE SODIUM [Concomitant]
     Active Substance: PANTOPRAZOLE SODIUM
     Indication: Prophylaxis
     Dosage: 40 MG
     Route: 048
     Dates: start: 20211203, end: 20230426
  20. PANTOPRAZOLE SODIUM [Concomitant]
     Active Substance: PANTOPRAZOLE SODIUM
     Dosage: 40 MG
     Route: 048
     Dates: start: 20231008, end: 20231008

REACTIONS (2)
  - Febrile infection [Recovered/Resolved]
  - Respiratory tract infection [Recovered/Resolved]

NARRATIVE: CASE EVENT DATE: 20230426
